FAERS Safety Report 15668492 (Version 1)
Quarter: 2018Q4

REPORT INFORMATION
  Report Type: Spontaneous
  Country: US (occurrence: US)
  Receive Date: 20181129
  Receipt Date: 20181129
  Transmission Date: 20190205
  Serious: No
  Sender: FDA-Public Use
  Company Number: US-B.I. PHARMACEUTICALS,INC./RIDGEFIELD-2018-BI-056416

PATIENT
  Age: 69 Year
  Sex: Female

DRUGS (1)
  1. SPIRIVA RESPIMAT [Suspect]
     Active Substance: TIOTROPIUM BROMIDE
     Indication: CHRONIC OBSTRUCTIVE PULMONARY DISEASE
     Dosage: ; FORMULATION: INHALATION SPRAY? ACTION(S) TAKEN WITH PRODUCT: DOSE NOT CHANGED
     Route: 055
     Dates: start: 201801

REACTIONS (7)
  - Dehydration [Unknown]
  - Nasal dryness [Unknown]
  - Dry mouth [Unknown]
  - Dental caries [Unknown]
  - Dry skin [Unknown]
  - Pruritus generalised [Unknown]
  - Dry skin [Unknown]

NARRATIVE: CASE EVENT DATE: 201802
